FAERS Safety Report 6671750-1 (Version None)
Quarter: 2010Q2

REPORT INFORMATION
  Report Type: 
  Country: None (occurrence: None)
  Receive Date: 20100407
  Receipt Date: 20100327
  Transmission Date: 20101027
  Serious: No
  Sender: FDA-Public Use
  Company Number: US-B.I. PHARMACEUTICALS,INC./RIDGEFIELD-2010-BP-03615BP

PATIENT
  Sex: Female

DRUGS (5)
  1. SPIRIVA [Suspect]
     Indication: EMPHYSEMA
     Dosage: 18 MCG
     Route: 055
  2. SPIRIVA [Suspect]
     Dosage: 18 MCG
     Route: 055
     Dates: start: 20100301
  3. METOPROLOL TARTRATE [Concomitant]
     Indication: HYPERTENSION
     Dosage: 50 MG
  4. DOXYCYCLINE [Concomitant]
     Dosage: 100 MG
  5. MEDICATION NOT OTHERWISE SPECIFIED [Concomitant]
     Indication: BIPOLAR DISORDER

REACTIONS (2)
  - INAPPROPRIATE AFFECT [None]
  - RECTAL HAEMORRHAGE [None]
